FAERS Safety Report 14740056 (Version 1)
Quarter: 2018Q2

REPORT INFORMATION
  Report Type: Spontaneous
  Country: US (occurrence: US)
  Receive Date: 20180404
  Receipt Date: 20180404
  Transmission Date: 20180711
  Serious: No
  Sender: FDA-Public Use
  Company Number: None

PATIENT
  Age: 67 Year
  Sex: Male

DRUGS (1)
  1. APIXABAN [Suspect]
     Active Substance: APIXABAN
     Indication: ATRIAL FIBRILLATION
     Route: 048
     Dates: start: 20180129, end: 20180326

REACTIONS (3)
  - Ocular hyperaemia [None]
  - Vision blurred [None]
  - Vitreous haemorrhage [None]

NARRATIVE: CASE EVENT DATE: 20180326
